FAERS Safety Report 9716207 (Version 1)
Quarter: 2013Q4

REPORT INFORMATION
  Report Type: Report from Study
  Country: US (occurrence: US)
  Receive Date: 20131127
  Receipt Date: 20131127
  Transmission Date: 20140711
  Serious: Yes (Hospitalization, Other)
  Sender: FDA-Public Use
  Company Number: US-NAPPMUNDI-USA-2013-0109005

PATIENT
  Age: 51 Year
  Sex: Male

DRUGS (2)
  1. OXY CR TAB [Suspect]
     Indication: ARTHRALGIA
     Dosage: 40 MG, TID
     Route: 048
  2. OXY CR TAB [Suspect]
     Indication: ARTHRALGIA
     Dosage: 15 MG, ONE OR TWO

REACTIONS (5)
  - Ankle fracture [Unknown]
  - Mobility decreased [Unknown]
  - Wound infection [Unknown]
  - Intentional drug misuse [Unknown]
  - Road traffic accident [Unknown]
